FAERS Safety Report 8874224 (Version 2)
Quarter: 2012Q4

REPORT INFORMATION
  Report Type: 
  Country: DE (occurrence: DE)
  Receive Date: 20121030
  Receipt Date: 20121109
  Transmission Date: 20130627
  Serious: Yes (Death, Life-Threatening, Hospitalization, Other)
  Sender: FDA-Public Use
  Company Number: DE-ELI_LILLY_AND_COMPANY-DE201210007197

PATIENT
  Sex: Male
  Weight: 158 kg

DRUGS (9)
  1. BYETTA [Suspect]
     Indication: TYPE 2 DIABETES MELLITUS
     Dosage: 5 ug, bid
     Route: 058
     Dates: start: 20121008, end: 20121010
  2. LEVEMIR [Concomitant]
     Dosage: 36 IU, UNK
     Dates: start: 1997
  3. APIDRA [Concomitant]
     Dosage: 84 IU, qd
     Dates: start: 1997
  4. ALLOPURINOL [Concomitant]
  5. PANTOPRAZOL [Concomitant]
  6. METOPROLOL [Concomitant]
  7. GABAPENTIN [Concomitant]
  8. EPLERENONE [Concomitant]
  9. TORASEMID [Concomitant]

REACTIONS (3)
  - Pancreatic carcinoma [Unknown]
  - Multi-organ failure [Fatal]
  - Septic shock [Fatal]
